FAERS Safety Report 12650939 (Version 1)
Quarter: 2016Q3

REPORT INFORMATION
  Report Type: Spontaneous
  Country: US (occurrence: None)
  Receive Date: 20160812
  Receipt Date: 20160812
  Transmission Date: 20161109
  Serious: No
  Sender: FDA-Public Use
  Company Number: None

PATIENT
  Age: 34 Year
  Sex: Male
  Weight: 60.33 kg

DRUGS (1)
  1. CREST PRO-HEALTH (CETYLPYRIDINIUM CHLORIDE) [Suspect]
     Active Substance: CETYLPYRIDINIUM CHLORIDE
     Indication: DENTAL DISORDER PROPHYLAXIS
     Dates: start: 20160808, end: 20160810

REACTIONS (3)
  - Dysgeusia [None]
  - Tongue discomfort [None]
  - Glossodynia [None]

NARRATIVE: CASE EVENT DATE: 20160811
